FAERS Safety Report 21767592 (Version 3)
Quarter: 2022Q4

REPORT INFORMATION
  Report Type: Spontaneous
  Country: GB (occurrence: GB)
  Receive Date: 20221222
  Receipt Date: 20221228
  Transmission Date: 20230112
  Serious: Yes (Life-Threatening, Hospitalization, Other)
  Sender: FDA-Public Use
  Company Number: GB-MLMSERVICE-20221208-3971849-1

PATIENT
  Age: 11 Year
  Sex: Male

DRUGS (9)
  1. ZOLEDRONIC ACID [Suspect]
     Active Substance: ZOLEDRONIC ACID
     Indication: Osteoporosis
     Dosage: 1 DF, SINGLE, 0.05 MG/KG
     Route: 042
  2. ONDANSETRON [Concomitant]
     Active Substance: ONDANSETRON
     Dosage: UNK
  3. ACETAMINOPHEN [Concomitant]
     Active Substance: ACETAMINOPHEN
     Dosage: UNK
  4. CALCIUM [Concomitant]
     Active Substance: CALCIUM
     Dosage: 15 MMOL, 2X/DAY, FOR 5 DAYS
  5. DEFLAZACORT [Concomitant]
     Active Substance: DEFLAZACORT
     Dosage: 0.7 MG/KG, 1X/DAY
  6. HYDROCORTISONE [Concomitant]
     Active Substance: HYDROCORTISONE
     Dosage: 100 MG  (INITIALLY 10ML/KG 0.9% SALINE BOLUS OF FOLLOWED BY MAINTENANCE FLUIDS)
     Route: 030
  7. HYDROCORTISONE [Concomitant]
     Active Substance: HYDROCORTISONE
     Dosage: 2 MG/KG
  8. DEXTROSE [Concomitant]
     Active Substance: DEXTROSE
     Dosage: 2 ML/KG
     Route: 042
  9. CEFTRIAXONE [Concomitant]
     Active Substance: CEFTRIAXONE
     Indication: Adrenal suppression
     Dosage: 80 MG/KG
     Route: 042

REACTIONS (6)
  - Cardiac ventricular thrombosis [Unknown]
  - Ventricular dysfunction [Unknown]
  - Hypercoagulation [Unknown]
  - Acute phase reaction [Unknown]
  - Off label use [Unknown]
  - Off label use [Unknown]
